FAERS Safety Report 4762284-X (Version None)
Quarter: 2005Q3

REPORT INFORMATION
  Report Type: 
  Country: None (occurrence: None)
  Receive Date: 20050907
  Receipt Date: 20050225
  Transmission Date: 20060218
  Serious: Yes (Hospitalization)
  Sender: FDA-Public Use
  Company Number: FR-BOEHRINGER INGELHEIM PHARMACEUTICALS, INC.-2005-FF-00137FF

PATIENT
  Sex: Male

DRUGS (8)
  1. VIRAMUNE [Suspect]
     Indication: HIV INFECTION
     Route: 015
     Dates: end: 20020429
  2. VIDEX [Concomitant]
     Indication: HIV INFECTION
     Route: 015
     Dates: end: 20020429
  3. EPIVIR [Concomitant]
     Indication: HIV INFECTION
     Route: 015
     Dates: end: 20020429
  4. ZIAGEN [Concomitant]
     Indication: HIV INFECTION
     Route: 015
     Dates: end: 20020429
  5. TENOFOVIR [Concomitant]
     Indication: HIV INFECTION
     Route: 015
     Dates: start: 20020430, end: 20020704
  6. ZALCITABINE [Concomitant]
     Indication: HIV INFECTION
     Route: 015
     Dates: start: 20020430, end: 20020704
  7. LOPINAVIR [Concomitant]
     Indication: HIV INFECTION
     Route: 015
     Dates: start: 20020430, end: 20020704
  8. RITONAVIR [Concomitant]
     Indication: HIV INFECTION
     Route: 015
     Dates: start: 20020430, end: 20020704

REACTIONS (8)
  - ABNORMAL BEHAVIOUR [None]
  - CAESAREAN SECTION [None]
  - DEVELOPMENTAL DELAY [None]
  - DRUG EXPOSURE DURING PREGNANCY [None]
  - NEONATAL DISORDER [None]
  - PSYCHOMOTOR RETARDATION [None]
  - SLEEP DISORDER [None]
  - SPEECH DISORDER DEVELOPMENTAL [None]
